FAERS Safety Report 4281043-8 (Version None)
Quarter: 2004Q1

REPORT INFORMATION
  Report Type: 
  Country: None (occurrence: None)
  Receive Date: 20040129
  Receipt Date: 20031117
  Transmission Date: 20041129
  Serious: Yes (Other)
  Sender: FDA-Public Use
  Company Number: US-BRISTOL-MYERS SQUIBB COMPANY-12437802

PATIENT
  Age: 31 Year
  Sex: Male

DRUGS (3)
  1. BLEOMYCIN SULFATE [Suspect]
     Indication: TESTIS CANCER
  2. VP-16 [Suspect]
     Indication: TESTIS CANCER
  3. PLATINOL [Suspect]
     Indication: TESTIS CANCER

REACTIONS (1)
  - MYOCARDIAL INFARCTION [None]
